FAERS Safety Report 4830980-1 (Version None)
Quarter: 2005Q4

REPORT INFORMATION
  Report Type: 
  Country: None (occurrence: None)
  Receive Date: 20051118
  Receipt Date: 20040910
  Transmission Date: 20060501
  Serious: Yes (Other)
  Sender: FDA-Public Use
  Company Number: US-SP-2004-03002

PATIENT
  Age: 51 Year
  Sex: Female

DRUGS (2)
  1. TUBERSOL [Suspect]
     Indication: TUBERCULIN TEST
     Route: 058
     Dates: start: 20040910
  2. TUBERSOL [Suspect]
     Route: 058
     Dates: start: 20040910

REACTIONS (5)
  - ANAPHYLACTOID REACTION [None]
  - DYSPNOEA [None]
  - INCORRECT ROUTE OF DRUG ADMINISTRATION [None]
  - LOSS OF CONSCIOUSNESS [None]
  - RASH [None]
